FAERS Safety Report 7199720-8 (Version None)
Quarter: 2010Q4

REPORT INFORMATION
  Report Type: 
  Country: None (occurrence: None)
  Receive Date: 20101228
  Receipt Date: 20101223
  Transmission Date: 20110411
  Serious: Yes (Life-Threatening)
  Sender: FDA-Public Use
  Company Number: FR-ROCHE-662917

PATIENT
  Sex: Female
  Weight: 57.6 kg

DRUGS (9)
  1. CAPECITABINE [Suspect]
     Indication: BREAST CANCER
     Dosage: LAST DOSE PRIOR TO SAE ON 29 SEP 2009
     Route: 048
     Dates: start: 20090928
  2. DIFFU-K [Concomitant]
     Dates: start: 20090917, end: 20090929
  3. KEPPRA [Concomitant]
     Dates: start: 20090917
  4. METHYLPREDNISOLONE [Concomitant]
     Dosage: DRUG: SOLUMEDROL
     Dates: start: 20090917
  5. NEXIUM [Concomitant]
     Dates: start: 20090917
  6. PRIMPERAN TAB [Concomitant]
     Dates: start: 20090917, end: 20091003
  7. ACUPAN [Concomitant]
     Dates: start: 20090917
  8. LOVENOX [Concomitant]
     Dosage: DOSE: 4000 UI
     Dates: start: 20090917
  9. MORPHINE [Concomitant]
     Dosage: DRUG: MORPHINE 2; DOSE: 1ML/HR.
     Dates: start: 20090925, end: 20091005

REACTIONS (1)
  - DEPRESSED LEVEL OF CONSCIOUSNESS [None]
